FAERS Safety Report 13974689 (Version 1)
Quarter: 2017Q3

REPORT INFORMATION
  Report Type: Spontaneous
  Country: US (occurrence: US)
  Receive Date: 20170915
  Receipt Date: 20170915
  Transmission Date: 20171128
  Serious: No
  Sender: FDA-Public Use
  Company Number: US-009507513-1708USA010753

PATIENT
  Sex: Female
  Weight: 52.15 kg

DRUGS (1)
  1. IMPLANON [Suspect]
     Active Substance: ETONOGESTREL
     Indication: CONTRACEPTION
     Dosage: 1 IMPLANT, EVERY 3 YEARS
     Route: 059

REACTIONS (5)
  - Migraine [Unknown]
  - Peripheral swelling [Unknown]
  - Headache [Unknown]
  - Vaginal haemorrhage [Recovered/Resolved]
  - Implant site discolouration [Unknown]
